FAERS Safety Report 8124905-3 (Version None)
Quarter: 2012Q1

REPORT INFORMATION
  Report Type: 
  Country: None (occurrence: None)
  Receive Date: 20120209
  Receipt Date: 20120203
  Transmission Date: 20120608
  Serious: Yes (Other)
  Sender: FDA-Public Use
  Company Number: US-PFIZER INC-2012014408

PATIENT
  Sex: Female

DRUGS (1)
  1. SOLU-MEDROL [Suspect]
     Indication: RASH
     Dosage: 1 G, SLOW IV DRIP
     Route: 042
     Dates: start: 20120115, end: 20120115

REACTIONS (3)
  - UPPER AIRWAY OBSTRUCTION [None]
  - RESPIRATORY ARREST [None]
  - RASH [None]
